FAERS Safety Report 22519242 (Version 1)
Quarter: 2023Q2

REPORT INFORMATION
  Report Type: Spontaneous
  Country: BE (occurrence: BE)
  Receive Date: 20230605
  Receipt Date: 20230605
  Transmission Date: 20230722
  Serious: Yes (Other)
  Sender: FDA-Public Use
  Company Number: None

PATIENT
  Sex: Male

DRUGS (5)
  1. PREDNISOLONE [Suspect]
     Active Substance: PREDNISOLONE
     Indication: Sarcoidosis
     Dosage: 16 MILLIGRAM, QD
     Route: 048
  2. PREDNISOLONE [Suspect]
     Active Substance: PREDNISOLONE
     Indication: Tubulointerstitial nephritis and uveitis syndrome
  3. METHYLPREDNISOLONE [Suspect]
     Active Substance: METHYLPREDNISOLONE
     Indication: Tubulointerstitial nephritis and uveitis syndrome
     Dosage: HIGH DOSES OF LOCAL AND I.V. METHYLPREDNISOLONE
     Route: 065
  4. METHYLPREDNISOLONE [Suspect]
     Active Substance: METHYLPREDNISOLONE
     Dosage: HIGH DOSES OF LOCAL AND I.V. METHYLPREDNISOLONE
     Route: 042
  5. INDOMETHACIN [Concomitant]
     Active Substance: INDOMETHACIN
     Indication: Bartter^s syndrome
     Dosage: UNK
     Route: 065

REACTIONS (6)
  - Spinal deformity [Unknown]
  - Amyotrophy [Unknown]
  - Cushing^s syndrome [Unknown]
  - Osteoporosis [Unknown]
  - Condition aggravated [Unknown]
  - Disease recurrence [Unknown]
